FAERS Safety Report 25731953 (Version 1)
Quarter: 2025Q3

REPORT INFORMATION
  Report Type: Spontaneous
  Country: US (occurrence: None)
  Receive Date: 20250827
  Receipt Date: 20250827
  Transmission Date: 20251020
  Serious: Yes (Other)
  Sender: FDA-CTU
  Company Number: None

PATIENT
  Age: 50 Year
  Sex: Male

DRUGS (1)
  1. OPDIVO [Suspect]
     Active Substance: NIVOLUMAB

REACTIONS (6)
  - Mental impairment [None]
  - Oropharyngeal pain [None]
  - Decreased appetite [None]
  - Blood sodium decreased [None]
  - Thyroid disorder [None]
  - Memory impairment [None]
